FAERS Safety Report 9416396 (Version 1)
Quarter: 2013Q3

REPORT INFORMATION
  Report Type: Spontaneous
  Country: US (occurrence: US)
  Receive Date: 20130724
  Receipt Date: 20130724
  Transmission Date: 20140515
  Serious: No
  Sender: FDA-Public Use
  Company Number: US-PFIZER INC-2013213850

PATIENT
  Age: 79 Year
  Sex: Female

DRUGS (1)
  1. SUTENT [Suspect]
     Indication: MALIGNANT MELANOMA
     Dosage: 25 MG, UNK
     Dates: start: 20121030, end: 20130627

REACTIONS (3)
  - Off label use [Unknown]
  - Disease progression [Unknown]
  - Malignant melanoma [Unknown]
